FAERS Safety Report 5070237-X (Version None)
Quarter: 2006Q3

REPORT INFORMATION
  Report Type: 
  Country: None (occurrence: None)
  Receive Date: 20060731
  Receipt Date: 20060727
  Transmission Date: 20061208
  Serious: Yes (Hospitalization)
  Sender: FDA-Public Use
  Company Number: EM2006-0269

PATIENT
  Age: 66 Year
  Sex: Male

DRUGS (5)
  1. PROLEUKIN [Suspect]
     Indication: RENAL CELL CARCINOMA STAGE UNSPECIFIED
     Dosage: 18 MIU, SUBCUTAN.
     Route: 058
     Dates: start: 20060313, end: 20060406
  2. INTERFERON ALFA-2A                 (INTERFERON ALFA) [Suspect]
     Indication: RENAL CELL CARCINOMA STAGE UNSPECIFIED
     Dosage: 9 MIU
     Dates: start: 20060313, end: 20060403
  3. ACETAMINOPHEN [Concomitant]
  4. PASPERTIN (METOCLOPRAMIDE HYDROCHLORIDE) [Concomitant]
  5. NOVALGIN           (METAMIZOLE SODIUM) [Concomitant]

REACTIONS (3)
  - DEHYDRATION [None]
  - DIARRHOEA [None]
  - VOMITING [None]
